FAERS Safety Report 10003555 (Version 1)
Quarter: 2014Q1

REPORT INFORMATION
  Report Type: Spontaneous
  Country: FR (occurrence: FR)
  Receive Date: 20140312
  Receipt Date: 20140312
  Transmission Date: 20141002
  Serious: Yes (Hospitalization)
  Sender: FDA-Public Use
  Company Number: FR-MERCK-1403FRA005188

PATIENT
  Age: 65 Year
  Sex: Female

DRUGS (2)
  1. TIENAM 500MG/500MG, POUDRE POUR PERFUSION [Suspect]
     Dosage: UNK
     Route: 042
     Dates: start: 20140122, end: 20140130
  2. VANCOMYCIN MYLAN [Suspect]
     Dosage: UNK
     Route: 042
     Dates: start: 20140122, end: 20140130

REACTIONS (1)
  - Linear IgA disease [Recovering/Resolving]
